FAERS Safety Report 6544576-7 (Version None)
Quarter: 2010Q1

REPORT INFORMATION
  Report Type: 
  Country: None (occurrence: None)
  Receive Date: 20100115
  Receipt Date: 20100104
  Transmission Date: 20100710
  Serious: Yes (Hospitalization)
  Sender: FDA-Public Use
  Company Number: 2010000112

PATIENT
  Age: 55 Year
  Weight: 66 kg

DRUGS (9)
  1. TREANDA [Suspect]
     Indication: ADULT T-CELL LYMPHOMA/LEUKAEMIA
     Dosage: (220 MG, UID/QD), INTRAVENOUS; 220 MG 9220 MG, 1 IN 1 D), INTRAVENOUS
     Route: 042
     Dates: start: 20091026, end: 20091027
  2. TREANDA [Suspect]
     Indication: ADULT T-CELL LYMPHOMA/LEUKAEMIA
     Dosage: (220 MG, UID/QD), INTRAVENOUS; 220 MG 9220 MG, 1 IN 1 D), INTRAVENOUS
     Route: 042
     Dates: start: 20091116, end: 20091117
  3. BACTRIM [Concomitant]
  4. LEDERFOLIN (CALCIUM FOLINATE) [Concomitant]
  5. OMEPRAZOLE [Concomitant]
  6. PREDNISONE [Concomitant]
  7. ROVALCYTE (VALGANCICLOVIR) [Concomitant]
  8. VALACYCLOVIR HCL [Concomitant]
  9. ALLOPURINOL [Concomitant]

REACTIONS (3)
  - ATRIAL FIBRILLATION [None]
  - HYPOKALAEMIA [None]
  - PRESYNCOPE [None]
